FAERS Safety Report 14916938 (Version 3)
Quarter: 2019Q4

REPORT INFORMATION
  Report Type: Report from Study
  Country: CA (occurrence: CA)
  Receive Date: 20180520
  Receipt Date: 20191204
  Transmission Date: 20200122
  Serious: Yes (Other)
  Sender: FDA-Public Use
  Company Number: CA-ROCHE-2125366

PATIENT
  Sex: Female

DRUGS (9)
  1. ACTEMRA [Suspect]
     Active Substance: TOCILIZUMAB
     Indication: VASCULITIS
     Route: 058
     Dates: start: 20180105
  2. METHOTREXATE. [Concomitant]
     Active Substance: METHOTREXATE
  3. RISEDRONATE [Concomitant]
     Active Substance: RISEDRONATE SODIUM
  4. SYNTHROID [Concomitant]
     Active Substance: LEVOTHYROXINE SODIUM
  5. PANTOLOC [PANTOPRAZOLE] [Concomitant]
     Active Substance: PANTOPRAZOLE SODIUM
  6. ACETYLSALICYLIC ACID [Concomitant]
     Active Substance: ASPIRIN
  7. ACTEMRA [Suspect]
     Active Substance: TOCILIZUMAB
     Indication: TEMPORAL ARTERITIS
     Route: 058
     Dates: start: 201805
  8. PREDNISONE. [Concomitant]
     Active Substance: PREDNISONE
  9. ATIVAN [Concomitant]
     Active Substance: LORAZEPAM

REACTIONS (9)
  - Livedo reticularis [Unknown]
  - Gait disturbance [Unknown]
  - Cerebrovascular accident [Not Recovered/Not Resolved]
  - Venous thrombosis limb [Unknown]
  - Cardiovascular disorder [Unknown]
  - Liver function test increased [Unknown]
  - Skin irritation [Unknown]
  - Pain [Recovering/Resolving]
  - Dizziness [Unknown]
